FAERS Safety Report 8373897-0 (Version None)
Quarter: 2012Q2

REPORT INFORMATION
  Report Type: 
  Country: None (occurrence: None)
  Receive Date: 20120521
  Receipt Date: 20120516
  Transmission Date: 20120825
  Serious: Yes (Death, Other)
  Sender: FDA-Public Use
  Company Number: GB-ROCHE-1030009

PATIENT
  Sex: Female

DRUGS (3)
  1. LUCENTIS [Suspect]
     Indication: PRODUCT USED FOR UNKNOWN INDICATION
     Route: 050
  2. ACETAMINOPHEN AND CODEINE PHOSPHATE [Concomitant]
  3. CO-AMILOFRUSE [Concomitant]

REACTIONS (3)
  - OESOPHAGEAL STENOSIS [None]
  - MALAISE [None]
  - PNEUMONIA ASPIRATION [None]
